FAERS Safety Report 23787658 (Version 1)
Quarter: 2024Q2

REPORT INFORMATION
  Report Type: Spontaneous
  Country: US (occurrence: None)
  Receive Date: 20240425
  Receipt Date: 20240425
  Transmission Date: 20240715
  Serious: Yes (Hospitalization)
  Sender: FDA-Public Use
  Company Number: None

PATIENT
  Age: 80 Year
  Sex: Male

DRUGS (1)
  1. CIPROFLOXACIN [Suspect]
     Active Substance: CIPROFLOXACIN
     Indication: Drug therapy
     Dosage: OTHER FREQUENCY : BID;?
     Route: 048
     Dates: start: 20230524, end: 20230529

REACTIONS (6)
  - Confusional state [None]
  - Hypotension [None]
  - Tachycardia [None]
  - Sepsis [None]
  - Mental status changes [None]
  - Urinary tract infection [None]

NARRATIVE: CASE EVENT DATE: 20230524
